FAERS Safety Report 7958035-8 (Version None)
Quarter: 2011Q4

REPORT INFORMATION
  Report Type: 
  Country: None (occurrence: None)
  Receive Date: 20111205
  Receipt Date: 20111122
  Transmission Date: 20120403
  Serious: Yes (Hospitalization, Other)
  Sender: FDA-Public Use
  Company Number: DE-MYLANLABS-2011S1024073

PATIENT
  Age: 0 Year
  Sex: Male
  Weight: 4.06 kg

DRUGS (3)
  1. LAMOTRIGINE [Suspect]
     Dosage: 350 [MG/D ]
     Route: 064
  2. KALIUMJODID [Concomitant]
     Dosage: 0.2 [MG/D ]
     Route: 064
  3. FOLIC ACID [Concomitant]
     Indication: PROPHYLAXIS OF NEURAL TUBE DEFECT
     Dosage: 0.4 [MG/D ]
     Route: 064

REACTIONS (2)
  - SOMNOLENCE [None]
  - MATERNAL EXPOSURE DURING PREGNANCY [None]
